FAERS Safety Report 15955087 (Version 2)
Quarter: 2020Q4

REPORT INFORMATION
  Report Type: Spontaneous
  Country: US (occurrence: US)
  Receive Date: 20190213
  Receipt Date: 20201207
  Transmission Date: 20210113
  Serious: No
  Sender: FDA-Public Use
  Company Number: US-PFIZER INC-2019064643

PATIENT
  Age: 63 Year
  Sex: Female
  Weight: 48.53 kg

DRUGS (1)
  1. LATANOPROST. [Suspect]
     Active Substance: LATANOPROST
     Dosage: UNK

REACTIONS (3)
  - Eye irritation [Unknown]
  - Drug hypersensitivity [Unknown]
  - Eye pruritus [Unknown]
